FAERS Safety Report 19582549 (Version 1)
Quarter: 2021Q3

REPORT INFORMATION
  Report Type: Spontaneous
  Country: US (occurrence: US)
  Receive Date: 20210720
  Receipt Date: 20210720
  Transmission Date: 20211014
  Serious: Yes (Hospitalization, Other)
  Sender: FDA-Public Use
  Company Number: US-BAYER-2021-179059

PATIENT
  Age: 87 Year
  Sex: Male

DRUGS (4)
  1. TICAGRELOR. [Suspect]
     Active Substance: TICAGRELOR
  2. APIXABAN [Suspect]
     Active Substance: APIXABAN
  3. ACETYLSALICYLIC ACID [Suspect]
     Active Substance: ASPIRIN
  4. CLOPIDOGREL [Interacting]
     Active Substance: CLOPIDOGREL BISULFATE

REACTIONS (6)
  - Conjunctival pallor [None]
  - Labelled drug-drug interaction medication error [None]
  - Contraindicated product administered [None]
  - Lower gastrointestinal haemorrhage [None]
  - Blood loss anaemia [None]
  - Dizziness [None]
